FAERS Safety Report 24029098 (Version 1)
Quarter: 2024Q2

REPORT INFORMATION
  Report Type: Spontaneous
  Country: MY (occurrence: MY)
  Receive Date: 20240628
  Receipt Date: 20240628
  Transmission Date: 20240716
  Serious: Yes (Other)
  Sender: FDA-Public Use
  Company Number: MY-MYLANLABS-2024M1060440

PATIENT
  Age: 25 Year
  Sex: Male

DRUGS (1)
  1. EFAVIRENZ [Suspect]
     Active Substance: EFAVIRENZ
     Indication: Antiretroviral therapy
     Dosage: 600 MILLIGRAM, QD (DOSE INTERVAL 1 DAY)
     Route: 048

REACTIONS (1)
  - Erectile dysfunction [Unknown]
